FAERS Safety Report 7541780-6 (Version None)
Quarter: 2011Q2

REPORT INFORMATION
  Report Type: 
  Country: None (occurrence: None)
  Receive Date: 20110606
  Receipt Date: 20110525
  Transmission Date: 20111010
  Serious: Yes (Hospitalization)
  Sender: FDA-Public Use
  Company Number: 2009SP023954

PATIENT
  Age: 43 Year
  Sex: Male

DRUGS (9)
  1. RIBAVIRIN [Suspect]
     Indication: HEPATITIS C
     Dosage: 1000 MG, QD, PO
     Route: 048
     Dates: start: 20090615, end: 20090810
  2. CELEXA [Concomitant]
  3. PEG-INTRON [Suspect]
     Indication: HEPATITIS C
     Dosage: 120 MCG, QW, SC
     Route: 058
     Dates: start: 20090615, end: 20090810
  4. TRAZODONE HCL [Concomitant]
  5. CITALOPRAM HYDROBROMIDE [Concomitant]
  6. MIRTAZAPINE [Concomitant]
  7. METHADONE HCL [Concomitant]
  8. ALBUTEROL [Concomitant]
  9. VITAMIN B COMPLEX CAP [Concomitant]

REACTIONS (13)
  - DRUG DEPENDENCE [None]
  - ANXIETY [None]
  - CONDITION AGGRAVATED [None]
  - SUICIDAL IDEATION [None]
  - POST-TRAUMATIC STRESS DISORDER [None]
  - EMOTIONAL DISTRESS [None]
  - RED BLOOD CELL COUNT DECREASED [None]
  - HAEMOGLOBIN DECREASED [None]
  - HAEMATOCRIT DECREASED [None]
  - MAJOR DEPRESSION [None]
  - PAIN [None]
  - IRRITABILITY [None]
  - MENTAL DISORDER [None]
